FAERS Safety Report 4744803-2 (Version None)
Quarter: 2005Q3

REPORT INFORMATION
  Report Type: 
  Country: None (occurrence: None)
  Receive Date: 20050811
  Receipt Date: 20050703
  Transmission Date: 20060218
  Serious: Yes (Other)
  Sender: FDA-Public Use
  Company Number: 200512765BCC

PATIENT
  Age: 19 Year
  Sex: Female
  Weight: 49.8957 kg

DRUGS (1)
  1. MIDOL MAXIMUM STRENGTH MENSTRUAL [Suspect]
     Indication: MUSCLE SPASMS
     Dosage: 500 MG, ONCE, ORAL
     Route: 048
     Dates: start: 20050702

REACTIONS (4)
  - FATIGUE [None]
  - POOR QUALITY DRUG ADMINISTERED [None]
  - STRESS [None]
  - UNRESPONSIVE TO VERBAL STIMULI [None]
